FAERS Safety Report 6899316-9 (Version None)
Quarter: 2010Q3

REPORT INFORMATION
  Report Type: 
  Country: None (occurrence: None)
  Receive Date: 20100802
  Receipt Date: 20100720
  Transmission Date: 20110219
  Serious: Yes (Life-Threatening, Hospitalization)
  Sender: FDA-Public Use
  Company Number: DE-MYLANLABS-2010S1012925

PATIENT
  Age: 60 Year
  Sex: Female

DRUGS (1)
  1. FENTANYL [Suspect]
     Indication: ARTHRALGIA
     Dosage: 75 MCG/H
     Route: 062

REACTIONS (6)
  - ACCIDENTAL OVERDOSE [None]
  - COMA [None]
  - DRUG DISPENSING ERROR [None]
  - FALL [None]
  - LETHARGY [None]
  - RADIUS FRACTURE [None]
